FAERS Safety Report 14583600 (Version 1)
Quarter: 2018Q1

REPORT INFORMATION
  Report Type: Spontaneous
  Country: US (occurrence: US)
  Receive Date: 20180228
  Receipt Date: 20180228
  Transmission Date: 20180509
  Serious: Yes (Life-Threatening, Disabling)
  Sender: FDA-Public Use
  Company Number: None

PATIENT
  Age: 68 Year
  Sex: Female
  Weight: 64.86 kg

DRUGS (7)
  1. NOVOLOG [Suspect]
     Active Substance: INSULIN ASPART
  2. BSA CLONED INSULIN [Concomitant]
     Active Substance: INSULIN NOS
  3. LANTUS [Suspect]
     Active Substance: INSULIN GLARGINE
  4. HUMALOG [Suspect]
     Active Substance: INSULIN LISPRO
  5. HUMULIN NOS [Suspect]
     Active Substance: INSULIN HUMAN
     Indication: TYPE 1 DIABETES MELLITUS
     Dosage: COMPOUNDED PRDUCT - GENETICALLY MODIFIED?EXPIRATION DATE - 28 DAYS
     Dates: start: 20050721
  6. LEVEMIR [Suspect]
     Active Substance: INSULIN DETEMIR
  7. APIDRA [Suspect]
     Active Substance: INSULIN GLULISINE

REACTIONS (3)
  - Product substitution issue [None]
  - Blood glucose increased [None]
  - Drug effect decreased [None]

NARRATIVE: CASE EVENT DATE: 20180101
